FAERS Safety Report 13952716 (Version 5)
Quarter: 2018Q2

REPORT INFORMATION
  Report Type: Report from Study
  Country: GB (occurrence: GB)
  Receive Date: 20170911
  Receipt Date: 20180626
  Transmission Date: 20180711
  Serious: Yes (Death, Hospitalization, Other)
  Sender: FDA-Public Use
  Company Number: GB-ROCHE-1636544

PATIENT
  Sex: Male

DRUGS (2)
  1. FORTISIP [Concomitant]
     Active Substance: CARBOHYDRATES\FATTY ACIDS\MINERALS\PROTEIN\VITAMINS
  2. ESBRIET [Suspect]
     Active Substance: PIRFENIDONE
     Indication: IDIOPATHIC PULMONARY FIBROSIS
     Route: 048
     Dates: start: 20150818, end: 20171008

REACTIONS (24)
  - Increased appetite [Unknown]
  - Sleep disorder [Unknown]
  - Pneumonia [Unknown]
  - Malaise [Unknown]
  - Decreased appetite [Recovered/Resolved]
  - Palpitations [Not Recovered/Not Resolved]
  - Intestinal haemorrhage [Unknown]
  - Weight abnormal [Not Recovered/Not Resolved]
  - Cardiac disorder [Unknown]
  - Hypoacusis [Unknown]
  - Fatigue [Unknown]
  - Frustration tolerance decreased [Unknown]
  - Anaemia [Unknown]
  - General physical health deterioration [Unknown]
  - Eating disorder [Unknown]
  - White blood cell count decreased [Unknown]
  - Pneumonia [Fatal]
  - Dyspnoea [Unknown]
  - Heart rate irregular [Unknown]
  - Nausea [Recovered/Resolved]
  - Weight decreased [Recovered/Resolved]
  - Ageusia [Not Recovered/Not Resolved]
  - Asthenia [Unknown]
  - Decubitus ulcer [Recovered/Resolved]

NARRATIVE: CASE EVENT DATE: 20170220
